FAERS Safety Report 9832250 (Version 1)
Quarter: 2014Q1

REPORT INFORMATION
  Report Type: Spontaneous
  Country: US (occurrence: US)
  Receive Date: 20140121
  Receipt Date: 20140121
  Transmission Date: 20141002
  Serious: No
  Sender: FDA-Public Use
  Company Number: US-PFIZER INC-2014016366

PATIENT
  Sex: Female

DRUGS (3)
  1. ENBREL [Suspect]
     Dosage: UNK
  2. XELJANZ [Suspect]
     Indication: RHEUMATOID ARTHRITIS
     Dosage: 5 MG, 2X/DAY
     Dates: start: 2013
  3. HUMIRA [Suspect]
     Dosage: UNK

REACTIONS (1)
  - Herpes zoster [Unknown]
